FAERS Safety Report 10309378 (Version 1)
Quarter: 2014Q3

REPORT INFORMATION
  Report Type: Spontaneous
  Country: CN (occurrence: CN)
  Receive Date: 20140716
  Receipt Date: 20140716
  Transmission Date: 20150326
  Serious: Yes (Other)
  Sender: FDA-Public Use
  Company Number: CN-ABBVIE-14P-035-1259692-00

PATIENT
  Age: 36 Year

DRUGS (2)
  1. ALL OTHER THERAPEUTIC PRODUCTS [Concomitant]
     Active Substance: UNSPECIFIED INGREDIENT
     Indication: PRODUCT USED FOR UNKNOWN INDICATION
     Dates: start: 201207
  2. DEPAKINE CHRONO [Suspect]
     Active Substance: VALPROATE SODIUM
     Indication: EPILEPSY
     Route: 048
     Dates: start: 201207

REACTIONS (7)
  - Disease prodromal stage [Unknown]
  - Foaming at mouth [Unknown]
  - Loss of consciousness [Unknown]
  - Epilepsy [Unknown]
  - Fall [Unknown]
  - Convulsion [Unknown]
  - Headache [Unknown]
